FAERS Safety Report 10102275 (Version 1)
Quarter: 2014Q2

REPORT INFORMATION
  Report Type: Spontaneous
  Country: TW (occurrence: TW)
  Receive Date: 20140424
  Receipt Date: 20140424
  Transmission Date: 20141212
  Serious: Yes (Hospitalization)
  Sender: FDA-Public Use
  Company Number: TW-ASTRAZENECA-2014SE26884

PATIENT
  Age: 78 Year
  Sex: Female

DRUGS (7)
  1. ROSUVASTATIN [Suspect]
     Route: 048
  2. PHENYTOIN [Interacting]
     Route: 048
     Dates: start: 20081201
  3. PHENYTOIN [Interacting]
     Dosage: 100MG AT MORNING AND 200 MG AT AFTERNOON
     Route: 048
     Dates: start: 20081204, end: 20081222
  4. WARFARIN [Interacting]
     Route: 048
  5. CARVEDILOL [Concomitant]
  6. DIGOXIN [Concomitant]
  7. MAGNESIUM OXIDE [Concomitant]

REACTIONS (7)
  - Drug interaction [Unknown]
  - Overdose [Unknown]
  - Fall [Unknown]
  - Subdural haemorrhage [Unknown]
  - Ataxia [Unknown]
  - International normalised ratio increased [Unknown]
  - Fatigue [Unknown]
